FAERS Safety Report 10213310 (Version 1)
Quarter: 2014Q2

REPORT INFORMATION
  Report Type: Spontaneous
  Country: FR (occurrence: FR)
  Receive Date: 20140603
  Receipt Date: 20140603
  Transmission Date: 20141212
  Serious: Yes (Other)
  Sender: FDA-Public Use
  Company Number: FR-ACCORD-024030

PATIENT
  Age: 17 Year
  Sex: Female

DRUGS (2)
  1. OXALIPLATIN ACCORD [Concomitant]
     Indication: GASTRIC CANCER
  2. FLUOROURACILE ACCORD [Suspect]
     Indication: GASTRIC CANCER
     Dosage: FLUOROURACILE ACCORD 50 MG/ML, SOLUTION FOR INFUSION.
     Route: 042
     Dates: start: 20130711, end: 20140412

REACTIONS (3)
  - Breast oedema [Unknown]
  - Pain [Unknown]
  - Infusion site extravasation [Unknown]
